FAERS Safety Report 6600739-3 (Version None)
Quarter: 2010Q1

REPORT INFORMATION
  Report Type: 
  Country: None (occurrence: None)
  Receive Date: 20100223
  Receipt Date: 20100223
  Transmission Date: 20100710
  Serious: Yes (Other)
  Sender: FDA-Public Use
  Company Number: None

PATIENT
  Age: 33 Year
  Sex: Female
  Weight: 65.7716 kg

DRUGS (2)
  1. CLINDAMYCIN [Suspect]
     Indication: SINUSITIS
     Dosage: 2 CAPSULES BY MOUTH 3 TIMES A DAY PO
     Route: 048
     Dates: start: 20100118, end: 20100123
  2. METRONIDAZOLE [Suspect]
     Indication: COLITIS
     Dosage: 1 TABLET BY MOUTH 3 TIMES A DAY PO
     Route: 048
     Dates: start: 20100204, end: 20100207

REACTIONS (3)
  - COLITIS [None]
  - HYPOAESTHESIA [None]
  - NEUROPATHY PERIPHERAL [None]
